FAERS Safety Report 6368371-7 (Version None)
Quarter: 2009Q3

REPORT INFORMATION
  Report Type: 
  Country: None (occurrence: None)
  Receive Date: 20090922
  Receipt Date: 20090911
  Transmission Date: 20100115
  Serious: Yes (Hospitalization)
  Sender: FDA-Public Use
  Company Number: TW-BRACCO-000006

PATIENT
  Age: 77 Year
  Sex: Male
  Weight: 48 kg

DRUGS (4)
  1. MULTIHANCE [Suspect]
     Indication: NUCLEAR MAGNETIC RESONANCE IMAGING
     Route: 042
     Dates: start: 20090217, end: 20090217
  2. MULTIHANCE [Suspect]
     Route: 042
     Dates: start: 20090212, end: 20090212
  3. MULTIHANCE [Suspect]
     Indication: DIAGNOSTIC PROCEDURE
     Route: 042
     Dates: start: 20090217, end: 20090217
  4. MULTIHANCE [Suspect]
     Indication: METASTASES TO SPINE
     Route: 042
     Dates: start: 20090217, end: 20090217

REACTIONS (1)
  - INTERSTITIAL LUNG DISEASE [None]
